FAERS Safety Report 13189833 (Version 2)
Quarter: 2017Q1

REPORT INFORMATION
  Report Type: Spontaneous
  Country: JP (occurrence: JP)
  Receive Date: 20170206
  Receipt Date: 20170214
  Transmission Date: 20170428
  Serious: Yes (Other)
  Sender: FDA-Public Use
  Company Number: JP-MYLANLABS-2014S1014661

PATIENT

DRUGS (1)
  1. EPINEPHRINE MYLAN [Suspect]
     Active Substance: EPINEPHRINE
     Indication: PRODUCT USED FOR UNKNOWN INDICATION
     Dosage: 0.15 MG, UNK
     Route: 058
     Dates: start: 20140616

REACTIONS (3)
  - Accidental exposure to product by child [Unknown]
  - Injection site bruising [Unknown]
  - Injection site pallor [Recovering/Resolving]

NARRATIVE: CASE EVENT DATE: 20140616
